FAERS Safety Report 16924801 (Version 3)
Quarter: 2019Q4

REPORT INFORMATION
  Report Type: Spontaneous
  Country: US (occurrence: US)
  Receive Date: 20191016
  Receipt Date: 20191108
  Transmission Date: 20200122
  Serious: Yes (Other)
  Sender: FDA-Public Use
  Company Number: US-PFIZER INC-2019446671

PATIENT
  Sex: Female
  Weight: 61.22 kg

DRUGS (1)
  1. INDOCIN [Suspect]
     Active Substance: INDOMETHACIN
     Indication: MUSCULOSKELETAL PAIN
     Dosage: 75 MG, 1X/DAY
     Dates: start: 198210, end: 198210

REACTIONS (4)
  - Atrial fibrillation [Recovered/Resolved]
  - Ventricular arrhythmia [Recovered/Resolved]
  - Drug hypersensitivity [Recovered/Resolved]
  - Heart rate increased [Recovered/Resolved]
